FAERS Safety Report 7179317-6 (Version None)
Quarter: 2010Q4

REPORT INFORMATION
  Report Type: 
  Country: None (occurrence: None)
  Receive Date: 20101221
  Receipt Date: 20101213
  Transmission Date: 20110411
  Serious: Yes (Other)
  Sender: FDA-Public Use
  Company Number: PHHY2010IT84950

PATIENT
  Sex: Female

DRUGS (5)
  1. STALEVO 100 [Suspect]
     Indication: PARKINSON'S DISEASE
     Dosage: 200 PER DAY
     Route: 048
     Dates: start: 20091001
  2. PANTOPAN [Concomitant]
  3. MOTILIUM [Concomitant]
  4. AMANTADINE HCL [Concomitant]
     Dosage: UNK
     Route: 048
  5. SINEMET [Concomitant]
     Dosage: UNK

REACTIONS (1)
  - CYSTITIS [None]
